FAERS Safety Report 25198893 (Version 1)
Quarter: 2025Q2

REPORT INFORMATION
  Report Type: Other
  Country: US (occurrence: US)
  Receive Date: 20250415
  Receipt Date: 20250415
  Transmission Date: 20250716
  Serious: Yes (Hospitalization)
  Sender: VISTAPHARM
  Company Number: US-Vista Pharmaceuticals Inc.-2174927

PATIENT
  Age: 58 Year
  Sex: Male

DRUGS (12)
  1. SULFAMETHOXAZOLE\TRIMETHOPRIM [Suspect]
     Active Substance: SULFAMETHOXAZOLE\TRIMETHOPRIM
     Indication: Urinary tract infection
  2. AMLODIPINE [Concomitant]
     Active Substance: AMLODIPINE BESYLATE
  3. DULOXETINE [Concomitant]
     Active Substance: DULOXETINE
  4. AMITRIPTYLINE HYDROCHLORIDE [Concomitant]
     Active Substance: AMITRIPTYLINE HYDROCHLORIDE
  5. OXYCODONE [Concomitant]
     Active Substance: OXYCODONE
  6. BUTALBITAL, ACETAMINOPHEN, AND CAFFEINE [Concomitant]
     Active Substance: ACETAMINOPHEN\BUTALBITAL\CAFFEINE
  7. LEVOTHYROXINE [Concomitant]
     Active Substance: LEVOTHYROXINE
  8. PREGABALIN [Concomitant]
     Active Substance: PREGABALIN
  9. METHOCARBAMOL [Concomitant]
     Active Substance: METHOCARBAMOL
  10. TOLTERODINE TARTRATE [Concomitant]
     Active Substance: TOLTERODINE TARTRATE
  11. TAMSULOSIN HYDROCHLORIDE [Concomitant]
     Active Substance: TAMSULOSIN HYDROCHLORIDE
  12. LOSARTAN [Concomitant]
     Active Substance: LOSARTAN

REACTIONS (1)
  - Myoclonus [Recovering/Resolving]
